FAERS Safety Report 4514860-7 (Version None)
Quarter: 2004Q4

REPORT INFORMATION
  Report Type: 
  Country: None (occurrence: None)
  Receive Date: 20041126
  Receipt Date: 20041116
  Transmission Date: 20050328
  Serious: Yes (Hospitalization)
  Sender: FDA-Public Use
  Company Number: 2004-11-0850

PATIENT
  Age: 59 Year
  Sex: Male

DRUGS (5)
  1. INTRON A [Suspect]
     Indication: RENAL CELL CARCINOMA STAGE UNSPECIFIED
     Dosage: SEE IMAGE
     Route: 058
     Dates: start: 20040903, end: 20041014
  2. INTRON A [Suspect]
     Indication: RENAL CELL CARCINOMA STAGE UNSPECIFIED
     Dosage: SEE IMAGE
     Route: 058
     Dates: start: 20040903
  3. GLICLAZIDE [Concomitant]
  4. DEXAMETHASONE [Concomitant]
  5. PANTOPRAZOLE SODIUM [Concomitant]

REACTIONS (3)
  - MOBILITY DECREASED [None]
  - SPINAL CORD COMPRESSION [None]
  - VISUAL DISTURBANCE [None]
